FAERS Safety Report 7020461-1 (Version None)
Quarter: 2010Q3

REPORT INFORMATION
  Report Type: 
  Country: None (occurrence: None)
  Receive Date: 20100929
  Receipt Date: 20100908
  Transmission Date: 20110219
  Serious: Yes (Hospitalization)
  Sender: FDA-Public Use
  Company Number: US-ROCHE-722910

PATIENT
  Sex: Male

DRUGS (2)
  1. PEGASYS [Suspect]
     Dosage: RECEIVED ONLY ONE INJECTION
     Route: 065
     Dates: start: 20100813, end: 20100813
  2. RIBAVARIN [Suspect]
     Route: 065
     Dates: start: 20100813, end: 20100817

REACTIONS (1)
  - HEART RATE DECREASED [None]
